FAERS Safety Report 15542996 (Version 1)
Quarter: 2018Q4

REPORT INFORMATION
  Report Type: Report from Study
  Country: US (occurrence: US)
  Receive Date: 20181023
  Receipt Date: 20181023
  Transmission Date: 20190205
  Serious: Yes (Hospitalization, Other)
  Sender: FDA-Public Use
  Company Number: US-GILEAD-2018-0368481

PATIENT
  Age: 68 Year
  Sex: Female
  Weight: 74.9 kg

DRUGS (6)
  1. XARELTO [Concomitant]
     Active Substance: RIVAROXABAN
  2. PLAVIX [Concomitant]
     Active Substance: CLOPIDOGREL BISULFATE
  3. AMBRISENTAN [Suspect]
     Active Substance: AMBRISENTAN
     Indication: CARDIAC FAILURE CHRONIC
  4. COREG [Concomitant]
     Active Substance: CARVEDILOL
  5. AMBRISENTAN [Suspect]
     Active Substance: AMBRISENTAN
     Indication: PULMONARY HYPERTENSION
     Dosage: 10 MG, QD
     Route: 065
     Dates: start: 20130329
  6. AMIODARONE [Concomitant]
     Active Substance: AMIODARONE

REACTIONS (7)
  - Cardiac failure acute [Unknown]
  - Mitral valve incompetence [Unknown]
  - Cardiac ablation [Unknown]
  - Implantable defibrillator insertion [Unknown]
  - Dyspnoea [Unknown]
  - Hypotension [Not Recovered/Not Resolved]
  - Muscular weakness [Unknown]
